FAERS Safety Report 8835924 (Version 1)
Quarter: 2012Q4

REPORT INFORMATION
  Report Type: 
  Country: GB (occurrence: GB)
  Receive Date: 20121011
  Receipt Date: 20121011
  Transmission Date: 20130627
  Serious: Yes (Life-Threatening)
  Sender: FDA-Public Use
  Company Number: GB-NOVOPROD-361378

PATIENT
  Age: 58 Year
  Sex: Male
  Weight: 119 kg

DRUGS (18)
  1. VICTOZA [Suspect]
     Indication: DIABETES MELLITUS
     Dosage: 1.2 mg, qd
     Route: 058
     Dates: start: 20110812, end: 201209
  2. CO-DANTHRAMER [Concomitant]
  3. DEXAMETHASONE [Concomitant]
     Dosage: 2 mg, bid
  4. DEXTROSE [Concomitant]
     Dosage: 40%
  5. ESOMEPRAZOLE [Concomitant]
     Dosage: 40 mg, qd
  6. FLUDROCORTISONE [Concomitant]
     Dosage: 100 mcg, bid
  7. GELCLAIR                           /01702001/ [Concomitant]
     Dosage: 1 DF, UNK
  8. GLICLAZIDE [Concomitant]
     Dosage: 80 mg, bid
  9. HALOPERIDOL [Concomitant]
     Dosage: 1.5 mg, qd
  10. HUMULIN                            /00646003/ [Concomitant]
     Dosage: 3 UNK, UNK
  11. MICRALAX                           /06350701/ [Concomitant]
  12. MOVICOL                            /01625101/ [Concomitant]
     Dosage: 1 DF, bid
  13. OMEPRAZOLE [Concomitant]
     Dosage: 20 mg, bid
  14. PARACETAMOL [Concomitant]
     Dosage: 1 g, prn
  15. PREDNISOLONE [Concomitant]
     Dosage: 5 mg, qd
  16. QUININE SULPHATE [Concomitant]
     Dosage: 200 mg, UNK
  17. SALBUTAMOL [Concomitant]
     Dosage: 100 mcg, qd
     Route: 055
  18. SIMVASTATIN [Concomitant]
     Dosage: 40 mg, qd

REACTIONS (2)
  - Metastases to central nervous system [Not Recovered/Not Resolved]
  - Lung neoplasm malignant [Not Recovered/Not Resolved]
